FAERS Safety Report 25120786 (Version 1)
Quarter: 2025Q1

REPORT INFORMATION
  Report Type: Spontaneous
  Country: US (occurrence: US)
  Receive Date: 20250325
  Receipt Date: 20250325
  Transmission Date: 20250408
  Serious: Yes (Other)
  Sender: JOHNSON AND JOHNSON
  Company Number: US-JNJFOC-20250368049

PATIENT
  Age: 59 Year
  Sex: Female

DRUGS (3)
  1. OPSUMIT [Suspect]
     Active Substance: MACITENTAN
     Indication: Product used for unknown indication
     Route: 048
  2. REMODULIN [Suspect]
     Active Substance: TREPROSTINIL
     Indication: Pulmonary arterial hypertension
     Route: 058
     Dates: start: 202402
  3. TADALAFIL [Suspect]
     Active Substance: TADALAFIL
     Indication: Product used for unknown indication

REACTIONS (4)
  - Pneumonia [Unknown]
  - Feeling abnormal [Unknown]
  - Dizziness [Unknown]
  - Asthenia [Unknown]

NARRATIVE: CASE EVENT DATE: 20250101
